FAERS Safety Report 4546286-4 (Version None)
Quarter: 2005Q1

REPORT INFORMATION
  Report Type: 
  Country: None (occurrence: None)
  Receive Date: 20050106
  Receipt Date: 20041230
  Transmission Date: 20050727
  Serious: Yes (Hospitalization)
  Sender: FDA-Public Use
  Company Number: SE-MERCK-0501SWE00002

PATIENT
  Age: 64 Year
  Sex: Male

DRUGS (5)
  1. VIOXX [Suspect]
     Indication: ANKYLOSING SPONDYLITIS
     Route: 048
     Dates: start: 20021010, end: 20030305
  2. VIOXX [Suspect]
     Route: 048
     Dates: start: 20030301, end: 20040901
  3. METOPROLOL TARTRATE [Concomitant]
     Route: 065
  4. ASPIRIN [Concomitant]
     Route: 065
  5. ACETAMINOPHEN [Concomitant]
     Route: 065

REACTIONS (2)
  - ACUTE MYOCARDIAL INFARCTION [None]
  - ANGINA PECTORIS [None]
